FAERS Safety Report 14277595 (Version 2)
Quarter: 2018Q1

REPORT INFORMATION
  Report Type: Report from Study
  Country: JP (occurrence: JP)
  Receive Date: 20171212
  Receipt Date: 20180124
  Transmission Date: 20180508
  Serious: Yes (Hospitalization)
  Sender: FDA-Public Use
  Company Number: JP-EISAI MEDICAL RESEARCH-EC-2017-033946

PATIENT
  Age: 24 Year
  Sex: Male
  Weight: 96 kg

DRUGS (18)
  1. FYCOMPA [Suspect]
     Active Substance: PERAMPANEL
     Route: 048
     Dates: start: 20170427, end: 20170507
  2. FYCOMPA [Suspect]
     Active Substance: PERAMPANEL
     Route: 048
     Dates: start: 20170629, end: 20170726
  3. E KEPPRA [Concomitant]
     Active Substance: LEVETIRACETAM
  4. FYCOMPA [Suspect]
     Active Substance: PERAMPANEL
     Route: 048
     Dates: start: 20161208, end: 20161221
  5. FYCOMPA [Suspect]
     Active Substance: PERAMPANEL
     Route: 048
     Dates: start: 20170508, end: 20170628
  6. FYCOMPA [Suspect]
     Active Substance: PERAMPANEL
     Indication: PARTIAL SEIZURES
     Route: 048
     Dates: start: 20160825, end: 20160907
  7. ONON [Concomitant]
     Active Substance: PRANLUKAST
  8. ALEVIATIN [Concomitant]
     Active Substance: PHENYTOIN SODIUM
  9. HYDANTOL [Concomitant]
     Active Substance: PHENYTOIN SODIUM
  10. MYSTAN [Concomitant]
     Active Substance: CLOBAZAM
  11. FYCOMPA [Suspect]
     Active Substance: PERAMPANEL
     Route: 048
     Dates: start: 20170727
  12. TEGRETOL [Concomitant]
     Active Substance: CARBAMAZEPINE
  13. FYCOMPA [Suspect]
     Active Substance: PERAMPANEL
     Route: 048
     Dates: start: 20170119, end: 20170215
  14. FYCOMPA [Suspect]
     Active Substance: PERAMPANEL
     Route: 048
     Dates: start: 20170216, end: 20170426
  15. SEROQUEL [Concomitant]
     Active Substance: QUETIAPINE FUMARATE
  16. FYCOMPA [Suspect]
     Active Substance: PERAMPANEL
     Route: 048
     Dates: start: 20160908, end: 20161207
  17. FYCOMPA [Suspect]
     Active Substance: PERAMPANEL
     Route: 048
     Dates: start: 20161222, end: 20170118
  18. INVEGA [Concomitant]
     Active Substance: PALIPERIDONE

REACTIONS (1)
  - Epileptic psychosis [Recovered/Resolved]

NARRATIVE: CASE EVENT DATE: 20170508
